FAERS Safety Report 4621659-X (Version None)
Quarter: 2005Q1

REPORT INFORMATION
  Report Type: 
  Country: None (occurrence: None)
  Receive Date: 20050328
  Receipt Date: 20050318
  Transmission Date: 20050727
  Serious: Yes (Other)
  Sender: FDA-Public Use
  Company Number: 213103

PATIENT
  Age: 83 Year
  Sex: Female
  Weight: 53.5 kg

DRUGS (2)
  1. HERCEPTIN [Suspect]
     Indication: BREAST CANCER
     Dosage: 210 MG, SINGLE, INTRAVENOUS
     Route: 042
     Dates: start: 20050309, end: 20050309
  2. ZOMETA [Concomitant]

REACTIONS (2)
  - ANAPHYLACTIC REACTION [None]
  - INFUSION RELATED REACTION [None]
